FAERS Safety Report 4681498-0 (Version None)
Quarter: 2005Q2

REPORT INFORMATION
  Report Type: 
  Country: None (occurrence: None)
  Receive Date: 20050602
  Receipt Date: 20050516
  Transmission Date: 20051028
  Serious: Yes (Hospitalization)
  Sender: FDA-Public Use
  Company Number: US_0411108016

PATIENT
  Age: 13 Year
  Sex: Female

DRUGS (11)
  1. ZYPREXA [Suspect]
     Indication: SCHIZOPHRENIA
     Dosage: 30 MG AT BEDTIME
     Dates: start: 20040120, end: 20040322
  2. HUMULIN N [Concomitant]
  3. LAMOTRIGINE [Concomitant]
  4. ESCITALOPRAM OXALATE [Concomitant]
  5. FERROUS SULFATE [Concomitant]
  6. DIPHENHYDRAMINE HCL [Concomitant]
  7. LITHIUM CARBONATE [Concomitant]
  8. QUETIAPINE [Concomitant]
  9. RISPERIDONE [Concomitant]
  10. ABILIFY [Concomitant]
  11. MIRTAZAPINE [Concomitant]

REACTIONS (27)
  - AKATHISIA [None]
  - BIPOLAR DISORDER [None]
  - BLOOD GLUCOSE INCREASED [None]
  - DECREASED APPETITE [None]
  - DEPRESSION [None]
  - DIARRHOEA [None]
  - DISORIENTATION [None]
  - DISTURBANCE IN ATTENTION [None]
  - ELECTROENCEPHALOGRAM ABNORMAL [None]
  - EXCORIATION [None]
  - EXTRAPYRAMIDAL DISORDER [None]
  - FEELING ABNORMAL [None]
  - FEELING GUILTY [None]
  - FLAT AFFECT [None]
  - HALLUCINATION [None]
  - HALLUCINATIONS, MIXED [None]
  - INFLUENZA LIKE ILLNESS [None]
  - IRON DEFICIENCY ANAEMIA [None]
  - PHARYNGITIS [None]
  - POLYDIPSIA [None]
  - POLYURIA [None]
  - SELF-INJURIOUS IDEATION [None]
  - SUICIDAL IDEATION [None]
  - SUICIDE ATTEMPT [None]
  - UPPER RESPIRATORY TRACT INFECTION [None]
  - VISION BLURRED [None]
  - WEIGHT INCREASED [None]
